FAERS Safety Report 4658849-6 (Version None)
Quarter: 2005Q2

REPORT INFORMATION
  Report Type: 
  Country: None (occurrence: None)
  Receive Date: 20050509
  Receipt Date: 20050429
  Transmission Date: 20051028
  Serious: Yes (Hospitalization)
  Sender: FDA-Public Use
  Company Number: 2005069079

PATIENT
  Age: 63 Year
  Sex: Female

DRUGS (3)
  1. CELEBREX [Suspect]
     Indication: ILL-DEFINED DISORDER
     Dosage: 1 IN 1 D), ORAL
     Route: 048
     Dates: start: 20050316, end: 20050323
  2. HEPARIN -FRACTION, SODUM SOALT (HEPARIN-FRACTION, SODIUM SALT) [Suspect]
     Indication: ILL-DEFINED DISORDER
     Dosage: 0.4 ML (40 MG, 1 IN 1 D), SUBCUTANEOUS
     Route: 058
     Dates: start: 20050316, end: 20050323
  3. LANSOPRAZOLE [Concomitant]

REACTIONS (2)
  - ARTHRALGIA [None]
  - VASCULAR PURPURA [None]
